FAERS Safety Report 19245254 (Version 4)
Quarter: 2021Q2

REPORT INFORMATION
  Report Type: Report from Study
  Country: CN (occurrence: CN)
  Receive Date: 20210511
  Receipt Date: 20210517
  Transmission Date: 20210717
  Serious: Yes (Death, Hospitalization)
  Sender: FDA-Public Use
  Company Number: CN-EISAI MEDICAL RESEARCH-EC-2021-092598

PATIENT
  Age: 76 Year
  Sex: Male
  Weight: 43 kg

DRUGS (9)
  1. NIFEDIPINE. [Concomitant]
     Active Substance: NIFEDIPINE
     Dates: start: 201808, end: 20210411
  2. LENVATINIB [Suspect]
     Active Substance: LENVATINIB
     Indication: TRANSITIONAL CELL CARCINOMA
     Dosage: FLUCTUATED DOSAGE
     Route: 048
     Dates: start: 20201016, end: 20210314
  3. ACETAMINOPHEN + OXYCODONE HYDROCHLORIDE [Concomitant]
     Dates: start: 20201016, end: 20210411
  4. SHEN LING JIAN PI WEI KE LI [Concomitant]
     Dates: start: 20210302, end: 20210411
  5. LENVATINIB [Suspect]
     Active Substance: LENVATINIB
     Route: 048
     Dates: start: 20210315, end: 20210315
  6. OXYCODONE HYDROCHLORIDE. [Concomitant]
     Active Substance: OXYCODONE HYDROCHLORIDE
     Dates: start: 20210109, end: 20210411
  7. LEVOTHYROXINE SODIUM. [Concomitant]
     Active Substance: LEVOTHYROXINE SODIUM
     Dates: start: 20210316, end: 20210411
  8. PEMBROLIZUMAB. [Suspect]
     Active Substance: PEMBROLIZUMAB
     Indication: TRANSITIONAL CELL CARCINOMA
     Route: 041
     Dates: start: 20201016, end: 20210129
  9. PEMBROLIZUMAB. [Suspect]
     Active Substance: PEMBROLIZUMAB
     Route: 041
     Dates: start: 20210220, end: 20210220

REACTIONS (1)
  - Cachexia [Fatal]

NARRATIVE: CASE EVENT DATE: 20210412
